APPROVED DRUG PRODUCT: ARFORMOTEROL TARTRATE
Active Ingredient: ARFORMOTEROL TARTRATE
Strength: EQ 0.015MG BASE/2ML
Dosage Form/Route: SOLUTION;INHALATION
Application: A215385 | Product #001 | TE Code: AN
Applicant: SUN PHARMACEUTICAL INDUSTRIES LTD
Approved: May 26, 2022 | RLD: No | RS: No | Type: RX